FAERS Safety Report 4792951-3 (Version None)
Quarter: 2005Q4

REPORT INFORMATION
  Report Type: 
  Country: None (occurrence: None)
  Receive Date: 20051010
  Receipt Date: 20051003
  Transmission Date: 20060501
  Serious: Yes (Hospitalization, Disabling, Other)
  Sender: FDA-Public Use
  Company Number: GB-ABBOTT-05P-167-0312921-00

PATIENT
  Age: 36 Year
  Sex: Female

DRUGS (9)
  1. ERYTHROMYCIN STEARATE [Suspect]
     Indication: FURUNCLE
     Route: 048
  2. AZATHIOPRINE [Suspect]
     Indication: SYSTEMIC LUPUS ERYTHEMATOSUS
     Route: 048
     Dates: start: 20030101
  3. YASMIN [Suspect]
     Indication: ORAL CONTRACEPTION
     Route: 048
  4. HYDROXYCHLOROQUINE SULFATE [Suspect]
     Indication: SYSTEMIC LUPUS ERYTHEMATOSUS
     Route: 048
  5. ETODOLAC [Suspect]
     Indication: SYSTEMIC LUPUS ERYTHEMATOSUS
     Route: 048
  6. OMEPRAZOLE [Concomitant]
     Indication: ABDOMINAL PAIN
     Dates: start: 20050801
  7. LORATADINE [Concomitant]
     Indication: HYPERSENSITIVITY
     Route: 048
  8. SENNA [Concomitant]
     Indication: CONSTIPATION
     Route: 048
  9. DIHYDROCODEINE [Concomitant]
     Indication: PAIN

REACTIONS (2)
  - CHOLELITHIASIS [None]
  - PANCREATITIS [None]
